FAERS Safety Report 17649080 (Version 4)
Quarter: 2020Q3

REPORT INFORMATION
  Report Type: Report from Study
  Country: US (occurrence: US)
  Receive Date: 20200408
  Receipt Date: 20200923
  Transmission Date: 20201102
  Serious: No
  Sender: FDA-Public Use
  Company Number: NVSC2020US093357

PATIENT
  Sex: Male
  Weight: 103 kg

DRUGS (1)
  1. ILARIS [Suspect]
     Active Substance: CANAKINUMAB
     Indication: PYREXIA
     Dosage: 150 MG EVERY 6 WKS
     Route: 058

REACTIONS (3)
  - Weight increased [Unknown]
  - Cough [Unknown]
  - Nasal congestion [Unknown]
